FAERS Safety Report 8564045-2 (Version None)
Quarter: 2012Q3

REPORT INFORMATION
  Report Type: 
  Country: None (occurrence: None)
  Receive Date: 20120723
  Receipt Date: 20120706
  Transmission Date: 20120928
  Serious: Yes (Hospitalization)
  Sender: FDA-Public Use
  Company Number: JPI-P-017461

PATIENT
  Age: 45 Year
  Sex: Female

DRUGS (2)
  1. XYREM [Suspect]
     Indication: CATAPLEXY
     Dosage: 4 GM (2 GM, 2 IN 1 D), ORAL, (UNKNOWN), ORAL, 9 GM (4.5 GM, 2 IN 1 D), ORAL
     Route: 048
     Dates: start: 20100702
  2. XYREM [Suspect]
     Indication: CATAPLEXY
     Dosage: 4 GM (2 GM, 2 IN 1 D), ORAL, (UNKNOWN), ORAL, 9 GM (4.5 GM, 2 IN 1 D), ORAL
     Route: 048
     Dates: start: 20120120

REACTIONS (1)
  - ABDOMINAL PAIN [None]
